FAERS Safety Report 22239570 (Version 1)
Quarter: 2023Q2

REPORT INFORMATION
  Report Type: Spontaneous
  Country: US (occurrence: None)
  Receive Date: 20230420
  Receipt Date: 20230420
  Transmission Date: 20230722
  Serious: Yes (Hospitalization, Disabling, Other)
  Sender: FDA-Public Use
  Company Number: None

PATIENT
  Age: 65 Year
  Sex: Female
  Weight: 67.5 kg

DRUGS (39)
  1. BUPROPION HYDROCHLORIDE EXTENDED RELEASE [Suspect]
     Active Substance: BUPROPION HYDROCHLORIDE
     Indication: Disturbance in sexual arousal
     Dosage: OTHER QUANTITY : 1 TABLET(S);?
     Route: 048
     Dates: start: 20220725, end: 20220814
  2. ADVAIR HFA [Concomitant]
     Active Substance: FLUTICASONE PROPIONATE\SALMETEROL XINAFOATE
  3. ALLEGRA D [Concomitant]
  4. ALLEGRA [Concomitant]
     Active Substance: FEXOFENADINE HYDROCHLORIDE
  5. SYNTHROID [Concomitant]
     Active Substance: LEVOTHYROXINE SODIUM
  6. SINGULAIR [Concomitant]
     Active Substance: MONTELUKAST SODIUM
  7. LEXAPRO [Concomitant]
  8. FUROSEMIDE\POTASSIUM CHLORIDE [Concomitant]
     Active Substance: FUROSEMIDE\POTASSIUM CHLORIDE
  9. nesonex [Concomitant]
  10. CREON [Concomitant]
  11. OMEPRAZOLE [Concomitant]
     Active Substance: OMEPRAZOLE
  12. METOPROLOL [Concomitant]
  13. ACYCLOVIR [Concomitant]
     Active Substance: ACYCLOVIR
  14. DICYCLOVERINE [Concomitant]
  15. Restasis as needed med ondansetron [Concomitant]
  16. ONDANSETRON [Concomitant]
     Active Substance: ONDANSETRON
  17. FLUCONAZOLE [Concomitant]
     Active Substance: FLUCONAZOLE
  18. Cyclobenazprine [Concomitant]
  19. EPIPEN [Concomitant]
     Active Substance: EPINEPHRINE
  20. Proventil [Concomitant]
  21. Proventil tubes for nebulizer [Concomitant]
  22. METOCLOPRAMIDE [Concomitant]
  23. Zolpidem CR [Concomitant]
  24. LORAZEPAM [Concomitant]
  25. GARLIC [Concomitant]
     Active Substance: GARLIC
  26. POTASSIUM [Concomitant]
     Active Substance: POTASSIUM
  27. MAGNESIUM [Concomitant]
  28. B1 [Concomitant]
  29. PYRIDOXINE HYDROCHLORIDE [Concomitant]
     Active Substance: PYRIDOXINE HYDROCHLORIDE
  30. PANTOTHENIC ACID [Concomitant]
  31. Women^s vitamins [Concomitant]
  32. B complex [Concomitant]
  33. Ester C [Concomitant]
  34. FISH OIL [Concomitant]
     Active Substance: FISH OIL
  35. Probiotic [Concomitant]
  36. L Lysine [Concomitant]
  37. L GLUTAMINE [Concomitant]
  38. BIOTIN [Concomitant]
     Active Substance: BIOTIN
  39. VITAMIN D3 [Concomitant]
     Active Substance: CHOLECALCIFEROL

REACTIONS (5)
  - Diarrhoea [None]
  - Abdominal pain upper [None]
  - Nausea [None]
  - Vomiting [None]
  - Hypophagia [None]

NARRATIVE: CASE EVENT DATE: 20220815
